FAERS Safety Report 7126344-0 (Version None)
Quarter: 2010Q4

REPORT INFORMATION
  Report Type: 
  Country: None (occurrence: None)
  Receive Date: 20101129
  Receipt Date: 20101118
  Transmission Date: 20110411
  Serious: Yes (Other)
  Sender: FDA-Public Use
  Company Number: ES-JNJFOC-20101106489

PATIENT
  Age: 55 Year
  Sex: Female

DRUGS (6)
  1. TOPIRAMATE [Suspect]
     Indication: MIGRAINE PROPHYLAXIS
     Route: 048
  2. SINGULAIR [Concomitant]
     Route: 065
  3. TERTENSIF [Concomitant]
     Route: 065
  4. SYMBICORT [Concomitant]
     Route: 065
  5. CANDESARTAN CILEXETIL AND HYDROCHLOROTHIAZIDE [Concomitant]
     Route: 065
  6. EMEPROTON [Concomitant]
     Route: 065

REACTIONS (3)
  - INJURY [None]
  - LUMBAR VERTEBRAL FRACTURE [None]
  - OSTEOPOROSIS [None]
